FAERS Safety Report 4307359-4 (Version None)
Quarter: 2004Q1

REPORT INFORMATION
  Report Type: 
  Country: None (occurrence: None)
  Receive Date: 20040226
  Receipt Date: 20040212
  Transmission Date: 20041129
  Serious: Yes (Death, Other)
  Sender: FDA-Public Use
  Company Number: 2003036674

PATIENT
  Age: 49 Year
  Sex: Male

DRUGS (1)
  1. LIPITOR [Suspect]
     Indication: ILL-DEFINED DISORDER

REACTIONS (4)
  - CEREBRAL THROMBOSIS [None]
  - DEEP VEIN THROMBOSIS [None]
  - METASTASES TO CENTRAL NERVOUS SYSTEM [None]
  - METASTASES TO LIVER [None]
